FAERS Safety Report 6245979-0 (Version None)
Quarter: 2009Q2

REPORT INFORMATION
  Report Type: 
  Country: None (occurrence: None)
  Receive Date: 20090626
  Receipt Date: 20081124
  Transmission Date: 20091009
  Serious: No
  Sender: FDA-Public Use
  Company Number: A0748693A

PATIENT
  Age: 40 Year
  Sex: Female

DRUGS (8)
  1. IMITREX [Suspect]
     Indication: MIGRAINE
     Dosage: 100MG AS REQUIRED
     Route: 048
     Dates: start: 19950101
  2. PRILOSEC [Concomitant]
  3. PEPCID [Concomitant]
  4. DONNATAL [Concomitant]
  5. PROZAC [Concomitant]
  6. ELAVIL [Concomitant]
  7. CELEXA [Concomitant]
  8. DEPAKOTE [Concomitant]

REACTIONS (1)
  - DRUG INEFFECTIVE [None]
